FAERS Safety Report 7145785-9 (Version None)
Quarter: 2010Q4

REPORT INFORMATION
  Report Type: 
  Country: None (occurrence: None)
  Receive Date: 20101208
  Receipt Date: 20101124
  Transmission Date: 20110411
  Serious: Yes (Congenital Anomaly)
  Sender: FDA-Public Use
  Company Number: A0881192A

PATIENT
  Sex: Male

DRUGS (4)
  1. PAXIL [Suspect]
     Indication: MIGRAINE
     Dosage: 10MG AT NIGHT
  2. PRENATAL VITAMINS [Concomitant]
  3. ADVIL [Concomitant]
  4. IMITREX [Concomitant]

REACTIONS (3)
  - ATRIAL SEPTAL DEFECT [None]
  - DILATATION VENTRICULAR [None]
  - DRUG EXPOSURE DURING PREGNANCY [None]
